FAERS Safety Report 22642693 (Version 1)
Quarter: 2023Q2

REPORT INFORMATION
  Report Type: Spontaneous
  Country: GB (occurrence: GB)
  Receive Date: 20230627
  Receipt Date: 20230627
  Transmission Date: 20230722
  Serious: Yes (Other)
  Sender: FDA-Public Use
  Company Number: GB-TAKEDA-2023TUS020505

PATIENT
  Age: 78 Year
  Sex: Female

DRUGS (4)
  1. FUROSEMIDE [Suspect]
     Active Substance: FUROSEMIDE
     Indication: Product used for unknown indication
     Dosage: UNK
     Route: 050
  2. PERINDOPRIL [Suspect]
     Active Substance: PERINDOPRIL
     Indication: Product used for unknown indication
     Dosage: UNK; ;
     Route: 050
  3. AGALSIDASE ALFA [Suspect]
     Active Substance: AGALSIDASE ALFA
     Indication: Fabry^s disease
     Dosage: 14 MILLIGRAM, (2 WEEKS)
     Route: 050
     Dates: start: 20230131
  4. EMPAGLIFLOZIN [Suspect]
     Active Substance: EMPAGLIFLOZIN
     Indication: Product used for unknown indication
     Dosage: UNK
     Route: 050

REACTIONS (15)
  - Cough [Not Recovered/Not Resolved]
  - COVID-19 [Recovering/Resolving]
  - Diastolic dysfunction [Unknown]
  - Device dislocation [Unknown]
  - Dyspnoea exertional [Not Recovered/Not Resolved]
  - Fall [Unknown]
  - Pollakiuria [Unknown]
  - Memory impairment [Unknown]
  - Poor venous access [Unknown]
  - Venous pressure increased [Not Recovered/Not Resolved]
  - Pain in extremity [Not Recovered/Not Resolved]
  - Peripheral swelling [Not Recovered/Not Resolved]
  - Tibia fracture [Not Recovered/Not Resolved]
  - Product distribution issue [Unknown]
  - Inappropriate schedule of product administration [Unknown]
